FAERS Safety Report 4564303-2 (Version None)
Quarter: 2005Q1

REPORT INFORMATION
  Report Type: 
  Country: None (occurrence: None)
  Receive Date: 20050126
  Receipt Date: 20050110
  Transmission Date: 20050727
  Serious: Yes (Hospitalization)
  Sender: FDA-Public Use
  Company Number: FR_050105591

PATIENT
  Age: 63 Year
  Sex: Male

DRUGS (6)
  1. GEMZAR [Suspect]
     Indication: LYMPHOMA
     Dates: start: 20040616, end: 20040927
  2. MABTHERA (RITUXIMAB) [Concomitant]
  3. ONCOVIN [Concomitant]
  4. CYCLOPHOSPHAMIDE [Concomitant]
  5. DOXORUBICIN HCL [Concomitant]
  6. PREDNISONE [Concomitant]

REACTIONS (1)
  - BRONCHIOLITIS [None]
